FAERS Safety Report 13411375 (Version 4)
Quarter: 2020Q1

REPORT INFORMATION
  Report Type: Spontaneous
  Country: US (occurrence: US)
  Receive Date: 20170406
  Receipt Date: 20200207
  Transmission Date: 20200409
  Serious: No
  Sender: FDA-Public Use
  Company Number: US-JNJFOC-20170304535

PATIENT
  Sex: Male

DRUGS (6)
  1. RISPERIDONE. [Suspect]
     Active Substance: RISPERIDONE
     Indication: PRODUCT USED FOR UNKNOWN INDICATION
     Route: 048
     Dates: start: 20031008, end: 20040223
  2. RISPERDAL [Suspect]
     Active Substance: RISPERIDONE
     Route: 048
     Dates: start: 20121022, end: 20130222
  3. RISPERDAL [Suspect]
     Active Substance: RISPERIDONE
     Dosage: EVERY BEDTIME
     Route: 048
     Dates: start: 20120905
  4. RISPERDAL [Suspect]
     Active Substance: RISPERIDONE
     Indication: PRODUCT USED FOR UNKNOWN INDICATION
     Route: 048
     Dates: start: 20031008, end: 20040223
  5. RISPERIDONE. [Suspect]
     Active Substance: RISPERIDONE
     Dosage: EVERY BEDTIME
     Route: 048
     Dates: start: 20120905
  6. RISPERIDONE. [Suspect]
     Active Substance: RISPERIDONE
     Route: 048
     Dates: start: 20121022, end: 20130222

REACTIONS (2)
  - Gynaecomastia [Unknown]
  - Emotional distress [Unknown]
